FAERS Safety Report 6980117-8 (Version None)
Quarter: 2010Q3

REPORT INFORMATION
  Report Type: 
  Country: None (occurrence: None)
  Receive Date: 20100908
  Receipt Date: 20100901
  Transmission Date: 20110219
  Serious: Yes (Hospitalization)
  Sender: FDA-Public Use
  Company Number: 018069

PATIENT
  Sex: Female

DRUGS (1)
  1. CERTOLIZUMAB PEGOL (CERTOLIZUMAB PEGOL) [Suspect]
     Indication: RHEUMATOID ARTHRITIS
     Dosage: (200 MG  1X/2 WEEKS SUBCUTANEOUS)
     Route: 058
     Dates: start: 20100331, end: 20100901

REACTIONS (5)
  - COUGH [None]
  - DYSPHONIA [None]
  - NASAL SEPTUM DEVIATION [None]
  - NASOPHARYNGITIS [None]
  - TONSILLAR HYPERTROPHY [None]
